FAERS Safety Report 14989080 (Version 1)
Quarter: 2018Q2

REPORT INFORMATION
  Report Type: Report from Study
  Country: None (occurrence: PA)
  Receive Date: 20180608
  Receipt Date: 20180608
  Transmission Date: 20180711
  Serious: Yes (Hospitalization)
  Sender: FDA-Public Use
  Company Number: PA-ABBVIE-18S-125-2379966-00

PATIENT
  Age: 32 Year
  Sex: Male

DRUGS (2)
  1. ZEMPLAR [Suspect]
     Active Substance: PARICALCITOL
     Indication: HYPERPARATHYROIDISM SECONDARY
  2. ZEMPLAR [Suspect]
     Active Substance: PARICALCITOL
     Indication: CHRONIC KIDNEY DISEASE
     Route: 048
     Dates: start: 20180502, end: 20180530

REACTIONS (3)
  - Hyperkalaemia [Not Recovered/Not Resolved]
  - Generalised oedema [Not Recovered/Not Resolved]
  - Tracheal mass [Not Recovered/Not Resolved]

NARRATIVE: CASE EVENT DATE: 20180530
